FAERS Safety Report 4307578-7 (Version None)
Quarter: 2004Q1

REPORT INFORMATION
  Report Type: 
  Country: None (occurrence: None)
  Receive Date: 20040225
  Receipt Date: 20030409
  Transmission Date: 20041129
  Serious: Yes (Disabling)
  Sender: FDA-Public Use
  Company Number: WAES 00031028

PATIENT
  Age: 78 Year
  Sex: Male
  Weight: 63.5036 kg

DRUGS (11)
  1. ZOCOR [Suspect]
     Indication: HYPERCHOLESTEROLAEMIA
     Dosage: 10 MG/DAILY/PO
     Route: 048
     Dates: start: 19960101, end: 20000201
  2. ZOCOR [Suspect]
     Indication: HYPERCHOLESTEROLAEMIA
     Dosage: 10 MG/DAILY/PO
     Route: 048
     Dates: start: 20000201
  3. AXID [Concomitant]
  4. FOSAMAX [Concomitant]
  5. HYDRODIURIL [Concomitant]
  6. HYTRIN [Concomitant]
  7. PLAVIX [Concomitant]
  8. VIOXX [Concomitant]
  9. FOLIC ACID [Concomitant]
  10. VERAPAMIL [Concomitant]
  11. VITAMIN E [Concomitant]

REACTIONS (6)
  - ARTHRALGIA [None]
  - BLOOD UREA INCREASED [None]
  - ERECTILE DYSFUNCTION [None]
  - HYPOKINESIA [None]
  - NEUROPATHY PERIPHERAL [None]
  - SYSTOLIC HYPERTENSION [None]
